FAERS Safety Report 11282853 (Version 2)
Quarter: 2015Q3

REPORT INFORMATION
  Report Type: Report from Study
  Country: US (occurrence: US)
  Receive Date: 20150720
  Receipt Date: 20150806
  Transmission Date: 20151125
  Serious: Yes (Other)
  Sender: FDA-Public Use
  Company Number: US-BIOGENIDEC-2015BI097743

PATIENT
  Age: 51 Year
  Sex: Female

DRUGS (7)
  1. ADVIL [Concomitant]
     Active Substance: IBUPROFEN
     Indication: PREMEDICATION
  2. LEVETIRACETAM. [Concomitant]
     Active Substance: LEVETIRACETAM
     Indication: SIMPLE PARTIAL SEIZURES
  3. REBIF [Concomitant]
     Active Substance: INTERFERON BETA-1A
     Dates: start: 201407
  4. TECFIDERA [Suspect]
     Active Substance: DIMETHYL FUMARATE
     Indication: MULTIPLE SCLEROSIS
     Route: 048
     Dates: start: 201404, end: 20140701
  5. ADVIL [Concomitant]
     Active Substance: IBUPROFEN
     Indication: PAIN
  6. METOPROLOL [Concomitant]
     Active Substance: METOPROLOL
     Indication: HEART RATE
  7. ADVIL [Concomitant]
     Active Substance: IBUPROFEN
     Indication: INFLUENZA LIKE ILLNESS

REACTIONS (10)
  - Blood potassium decreased [Unknown]
  - General symptom [Recovered/Resolved]
  - Cholelithiasis [Recovered/Resolved]
  - Gastric disorder [Recovered/Resolved]
  - Dehydration [Unknown]
  - Simple partial seizures [Recovered/Resolved]
  - Pain [Unknown]
  - Skin atrophy [Unknown]
  - Dizziness [Unknown]
  - Haemorrhage [Recovered/Resolved]

NARRATIVE: CASE EVENT DATE: 2014
